FAERS Safety Report 8052020-6 (Version None)
Quarter: 2012Q1

REPORT INFORMATION
  Report Type: 
  Country: None (occurrence: None)
  Receive Date: 20120118
  Receipt Date: 20120112
  Transmission Date: 20120608
  Serious: Yes (Death, Other)
  Sender: FDA-Public Use
  Company Number: RU-JNJFOC-20111111615

PATIENT
  Age: 68 Year
  Sex: Female

DRUGS (3)
  1. INDAPAMID [Concomitant]
  2. XARELTO [Suspect]
     Indication: THROMBOSIS PROPHYLAXIS
     Route: 048
     Dates: start: 20111121, end: 20111121
  3. ENALAPRIL MALEATE [Concomitant]

REACTIONS (3)
  - PERIPHERAL EMBOLISM [None]
  - CARDIAC FAILURE [None]
  - PULMONARY EMBOLISM [None]
